FAERS Safety Report 5661199-2 (Version None)
Quarter: 2008Q1

REPORT INFORMATION
  Report Type: 
  Country: None (occurrence: None)
  Receive Date: 20080311
  Receipt Date: 20080304
  Transmission Date: 20080703
  Serious: Yes (Death, Hospitalization)
  Sender: FDA-Public Use
  Company Number: US-BAXTER-2008BH001382

PATIENT
  Age: 76 Year
  Sex: Male

DRUGS (2)
  1. DIANEAL [Suspect]
     Indication: RENAL FAILURE CHRONIC
     Dosage: DOSE UNIT:UNKNOWN
     Route: 033
     Dates: start: 20060227, end: 20080125
  2. DIANEAL [Suspect]
     Indication: RENAL FAILURE CHRONIC
     Dosage: DOSE UNIT:UNKNOWN
     Route: 033
     Dates: start: 20060227, end: 20080125

REACTIONS (6)
  - HYPOGLYCAEMIA [None]
  - MUSCLE SPASMS [None]
  - NAUSEA [None]
  - PYREXIA [None]
  - THERAPY CESSATION [None]
  - VOMITING [None]
